FAERS Safety Report 12687437 (Version 1)
Quarter: 2016Q3

REPORT INFORMATION
  Report Type: Spontaneous
  Country: US (occurrence: US)
  Receive Date: 20160825
  Receipt Date: 20160825
  Transmission Date: 20161109
  Serious: Yes (Hospitalization, Other)
  Sender: FDA-Public Use
  Company Number: US-HERITAGE PHARMACEUTICALS-2016HTG00204

PATIENT
  Age: 68 Year
  Sex: Female
  Weight: 102.4 kg

DRUGS (9)
  1. ASPIRIN (BAYER) [Concomitant]
     Active Substance: ASPIRIN
     Dosage: 1 OR 2 EVERY MORNING
     Route: 048
  2. LISINOPRIL. [Suspect]
     Active Substance: LISINOPRIL
     Indication: HYPERTENSION
     Dosage: UNK
     Route: 048
     Dates: start: 1998, end: 20160101
  3. METOPROLOL (MYLAN) [Suspect]
     Active Substance: METOPROLOL
     Dosage: 12.5 MG, UNK
     Route: 048
     Dates: start: 201602
  4. LOSARTAN POTASSIUM (TORRENT) [Suspect]
     Active Substance: LOSARTAN POTASSIUM
     Dosage: UNK
     Dates: start: 201602, end: 201608
  5. METOPROLOL (MYLAN) [Suspect]
     Active Substance: METOPROLOL
     Indication: HYPERTENSION
     Dosage: 12.5 MG, 1X/DAY
     Route: 048
     Dates: start: 1998, end: 201602
  6. ASPIRIN (BAYER) [Concomitant]
     Active Substance: ASPIRIN
     Dosage: 2 DOSAGE UNITS, 1X/DAY
     Route: 048
  7. HYDROCHLOROTHIAZIDE. [Suspect]
     Active Substance: HYDROCHLOROTHIAZIDE
     Indication: HYPERTENSION
     Dosage: 12.5 MG, 1X/DAY
     Route: 048
     Dates: start: 1998, end: 201602
  8. HYDROCHLOROTHIAZIDE. [Suspect]
     Active Substance: HYDROCHLOROTHIAZIDE
     Dosage: 12.5 MG, 2X/DAY
     Route: 048
     Dates: start: 201602
  9. ^BESYLATE^ [Suspect]
     Active Substance: UNSPECIFIED INGREDIENT

REACTIONS (14)
  - Lip swelling [Recovered/Resolved]
  - Hypertension [Not Recovered/Not Resolved]
  - Heart rate increased [Recovered/Resolved]
  - Dry mouth [Recovered/Resolved]
  - Diabetes mellitus inadequate control [Not Recovered/Not Resolved]
  - Tongue disorder [Recovered/Resolved]
  - Dyspnoea [Recovering/Resolving]
  - Urticaria [Unknown]
  - Dizziness [Recovered/Resolved]
  - Local swelling [Recovered/Resolved]
  - Fall [Recovered/Resolved]
  - Head injury [Recovered/Resolved]
  - Dysgeusia [Unknown]
  - Hypersensitivity [Recovered/Resolved]

NARRATIVE: CASE EVENT DATE: 2006
